FAERS Safety Report 8233516 (Version 2)
Quarter: 2013Q1

REPORT INFORMATION
  Report Type: Spontaneous
  Country: US (occurrence: US)
  Receive Date: 20111107
  Receipt Date: 20130305
  Transmission Date: 20140127
  Serious: Yes (Disabling)
  Sender: FDA-Public Use
  Company Number: US-MYLANLABS-2011S1022314

PATIENT
  Age: 7 Year
  Sex: Male

DRUGS (9)
  1. ETIDRONIC ACID [Suspect]
     Indication: VASCULAR CALCIFICATION
     Dosage: 13 MG/KG/DAY; THEN INCREASED TO 20 MG/KG/DAY AT AGE 18MO
     Route: 048
  2. ETIDRONIC ACID [Suspect]
     Indication: VASCULAR CALCIFICATION
     Dosage: 20 MG/KG/DAY (200 MG/DAY)
     Route: 048
  3. CAPTOPRIL [Concomitant]
     Dosage: PATIENT HAD HYPERTENSION, LEFT VENTRICULAR DYSFUNCTION
  4. DIGOXIN [Concomitant]
     Dosage: PATIENT HAD HYPERTENSION, LEFT VENTRICULAR DYSFUNCTION
     Route: 065
  5. FERROUS SULFATE [Concomitant]
     Route: 065
  6. FAMOTIDINE [Concomitant]
     Route: 065
  7. BACLOFEN [Concomitant]
     Route: 065
  8. METHADONE [Concomitant]
     Indication: PAIN
     Route: 065
  9. HYDROCODONE [Concomitant]
     Indication: PAIN

REACTIONS (6)
  - Rickets [Recovering/Resolving]
  - Osteoporosis [Recovering/Resolving]
  - Bone development abnormal [Recovering/Resolving]
  - Hypophosphatasia [Recovering/Resolving]
  - Calcinosis [Recovering/Resolving]
  - Condition aggravated [Recovering/Resolving]
